FAERS Safety Report 4665737-8 (Version None)
Quarter: 2005Q2

REPORT INFORMATION
  Report Type: 
  Country: None (occurrence: None)
  Receive Date: 20050519
  Receipt Date: 20050509
  Transmission Date: 20051028
  Serious: Yes (Other)
  Sender: FDA-Public Use
  Company Number: FR-BOEHRINGER INGELHEIM PHARMACEUTICALS, INC.-2005-DE-01742GD

PATIENT
  Age: 39 Year
  Sex: Male

DRUGS (3)
  1. NEVIRAPINE [Suspect]
     Indication: HIV INFECTION
     Dates: end: 20030501
  2. LAMIVUDINE [Suspect]
     Indication: HIV INFECTION
     Dates: end: 20030501
  3. ZIDOVUDINE [Suspect]
     Indication: HIV INFECTION
     Dates: end: 20030501

REACTIONS (2)
  - CD4 LYMPHOCYTES DECREASED [None]
  - VIRAL LOAD INCREASED [None]
